FAERS Safety Report 20916492 (Version 2)
Quarter: 2022Q2

REPORT INFORMATION
  Report Type: Spontaneous
  Country: RU (occurrence: RU)
  Receive Date: 20220605
  Receipt Date: 20220616
  Transmission Date: 20220721
  Serious: Yes (Hospitalization, Other)
  Sender: FDA-Public Use
  Company Number: RU-ORGANON-O2206RUS000185

PATIENT
  Age: 2 Year

DRUGS (1)
  1. SINGULAIR [Suspect]
     Active Substance: MONTELUKAST SODIUM
     Indication: Rhinitis allergic
     Dosage: UNK
     Route: 048

REACTIONS (1)
  - Bradycardia [Recovered/Resolved]
